FAERS Safety Report 7022873-9 (Version None)
Quarter: 2010Q3

REPORT INFORMATION
  Report Type: 
  Country: None (occurrence: None)
  Receive Date: 20100930
  Receipt Date: 20100927
  Transmission Date: 20110219
  Serious: Yes (Other)
  Sender: FDA-Public Use
  Company Number: RU-BAYER-201040773GPV

PATIENT
  Age: 20 Year
  Sex: Female

DRUGS (1)
  1. NEXAVAR [Suspect]
     Indication: RENAL CANCER
     Dosage: TOTAL DAILY DOSE: 400 MG
     Route: 048
     Dates: start: 20100301

REACTIONS (2)
  - METASTASES TO DIAPHRAGM [None]
  - METASTASES TO SPINE [None]
